FAERS Safety Report 21566401 (Version 2)
Quarter: 2022Q4

REPORT INFORMATION
  Report Type: Report from Study
  Country: US (occurrence: US)
  Receive Date: 20221108
  Receipt Date: 20221111
  Transmission Date: 20230112
  Serious: Yes (Hospitalization, Other)
  Sender: FDA-Public Use
  Company Number: US-ABBVIE-4191417

PATIENT
  Sex: Male

DRUGS (18)
  1. VENCLEXTA [Suspect]
     Active Substance: VENETOCLAX
     Indication: Acute myeloid leukaemia
     Dosage: TAKE 4 TABLET(S) BY MOUTH DAILY ON DAYS 2 TO 8 OF CHEMOTHERAPY.?FORM STRENGTH: 100 MILLIGRAM
     Route: 048
     Dates: start: 20221103
  2. Epinephrine 1mg/1 ml solution [Concomitant]
     Indication: Hypersensitivity
     Route: 030
  3. Cytarabine 750mg/m2 [Concomitant]
     Indication: Product used for unknown indication
     Dosage: UNIT -1460MG OVER 2 HOURS. ADMINISTER 3-6 HRS FOLLOWING COMPLETION OF CLADRIBINE INFUSIONONDAY 1-3
     Route: 042
  4. PALONOSETRON [Concomitant]
     Active Substance: PALONOSETRON
     Indication: Product used for unknown indication
     Route: 042
  5. Dexamethsone [Concomitant]
     Indication: Product used for unknown indication
     Route: 042
  6. Zarxio 480mcg/0.8ml syringe [Concomitant]
     Indication: Product used for unknown indication
     Dosage: UNIT DOSE- 480 MCG/ INJECT DAILY FOR 10 DAYS STARTING ON DAY 4
     Route: 058
  7. Neulasta 6mg/0.6ml syringe [Concomitant]
     Indication: Product used for unknown indication
     Route: 059
  8. LIPITOR [Concomitant]
     Active Substance: ATORVASTATIN CALCIUM
     Indication: Product used for unknown indication
     Route: 048
  9. LEVOFLOXACIN [Concomitant]
     Active Substance: LEVOFLOXACIN
     Indication: Product used for unknown indication
     Route: 048
  10. HYDROCORTISONE [Concomitant]
     Active Substance: HYDROCORTISONE
     Indication: Hypersensitivity
     Route: 042
  11. DIPHENHYDRAMINE [Concomitant]
     Active Substance: DIPHENHYDRAMINE
     Indication: Hypersensitivity
     Route: 042
  12. VORICONAZOLE [Concomitant]
     Active Substance: VORICONAZOLE
     Indication: Product used for unknown indication
     Dosage: UNIT DOSE - 200 MG /ADMINISTER ON EMPTY STOMACH ATLEAST 1 HOUR BEFORE OR AFTER MEALS
     Route: 048
  13. IDARUBICIN [Concomitant]
     Active Substance: IDARUBICIN
     Indication: Product used for unknown indication
     Route: 042
  14. ACYCLOVIR [Concomitant]
     Active Substance: ACYCLOVIR
     Indication: Product used for unknown indication
     Route: 048
  15. METHYLPREDNISOLONE [Concomitant]
     Active Substance: METHYLPREDNISOLONE
     Indication: Hypersensitivity
     Route: 042
  16. FOSAPREPITANT [Concomitant]
     Active Substance: FOSAPREPITANT
     Indication: Product used for unknown indication
     Route: 042
  17. Famotidine  10mg/ml solution [Concomitant]
     Indication: Hypersensitivity
     Route: 042
  18. Cladribine 10mg/10ml solution [Concomitant]
     Indication: Product used for unknown indication
     Route: 042

REACTIONS (3)
  - Leukaemia [Unknown]
  - Off label use [Unknown]
  - Cognitive disorder [Unknown]
